FAERS Safety Report 10474141 (Version 1)
Quarter: 2014Q3

REPORT INFORMATION
  Report Type: Spontaneous
  Country: US (occurrence: US)
  Receive Date: 20140924
  Receipt Date: 20140924
  Transmission Date: 20150326
  Serious: No
  Sender: FDA-Public Use
  Company Number: US-ASTRAZENECA-2014SE02231

PATIENT
  Age: 50 Year
  Sex: Female

DRUGS (7)
  1. MAGNESIUM [Concomitant]
     Active Substance: MAGNESIUM
  2. LISINOPRIL. [Suspect]
     Active Substance: LISINOPRIL
     Route: 048
  3. OMEGA 3 [Concomitant]
     Active Substance: OMEGA-3 FATTY ACIDS
  4. DIOVAN [Concomitant]
     Active Substance: VALSARTAN
  5. IBUPROFEN. [Concomitant]
     Active Substance: IBUPROFEN
  6. POTASSIUM [Concomitant]
     Active Substance: POTASSIUM
  7. ASPIRIN. [Concomitant]
     Active Substance: ASPIRIN

REACTIONS (6)
  - Autoimmune disorder [Unknown]
  - Exostosis [Unknown]
  - Diabetes mellitus [Unknown]
  - Adverse event [Unknown]
  - Abdominal adhesions [Unknown]
  - Cough [Unknown]
